FAERS Safety Report 21806476 (Version 1)
Quarter: 2023Q1

REPORT INFORMATION
  Report Type: Report from Study
  Country: US (occurrence: US)
  Receive Date: 20230102
  Receipt Date: 20230102
  Transmission Date: 20230418
  Serious: No
  Sender: FDA-Public Use
  Company Number: US-ABBVIE-4253469

PATIENT
  Age: 54 Year
  Sex: Male

DRUGS (4)
  1. SKYRIZI [Suspect]
     Active Substance: RISANKIZUMAB-RZAA
     Indication: Guttate psoriasis
     Dosage: 150 MG
     Route: 058
     Dates: start: 20211121
  2. TYLENOL ARTHRITIS 650 MG TABLET SA [Concomitant]
     Indication: Product used for unknown indication
  3. HYDROCHLOROTHIAZIDE\LOSARTAN [Concomitant]
     Active Substance: HYDROCHLOROTHIAZIDE\LOSARTAN
     Indication: Product used for unknown indication
  4. PFIZER COVID (12Y UP) VAC(EUA) [Concomitant]
     Indication: COVID-19 immunisation
     Route: 030

REACTIONS (1)
  - Influenza [Recovering/Resolving]

NARRATIVE: CASE EVENT DATE: 20221201
